FAERS Safety Report 6368807-1 (Version None)
Quarter: 2009Q3

REPORT INFORMATION
  Report Type: 
  Country: None (occurrence: None)
  Receive Date: 20090917
  Receipt Date: 20090917
  Transmission Date: 20100115
  Serious: Yes (Other)
  Sender: FDA-Public Use
  Company Number: None

PATIENT
  Sex: Female
  Weight: 100 kg

DRUGS (1)
  1. CIPRO [Suspect]
     Indication: BLOOD URINE PRESENT
     Dosage: 250MG TWICE DAILY ORAL
     Route: 048
     Dates: start: 20090814, end: 20090817

REACTIONS (2)
  - PARAESTHESIA [None]
  - VISION BLURRED [None]
